FAERS Safety Report 16148997 (Version 2)
Quarter: 2019Q2

REPORT INFORMATION
  Report Type: Report from Study
  Country: None (occurrence: CH)
  Receive Date: 20190402
  Receipt Date: 20190427
  Transmission Date: 20190711
  Serious: Yes (Hospitalization)
  Sender: FDA-Public Use
  Company Number: CH-ABBVIE-19S-151-2725702-00

PATIENT
  Age: 70 Year
  Sex: Male

DRUGS (3)
  1. DUODOPA [Suspect]
     Active Substance: CARBIDOPA\LEVODOPA
     Indication: PARKINSON^S DISEASE
     Route: 050
     Dates: start: 20180628, end: 20181016
  2. DUODOPA [Suspect]
     Active Substance: CARBIDOPA\LEVODOPA
     Dosage: MD: 7 ML CRD: 3 ML/H CRN: 0 ML/H 16 H THERAPY EXTRA DOSE: 1 ML
     Route: 050
     Dates: start: 20181017
  3. DUODOPA [Suspect]
     Active Substance: CARBIDOPA\LEVODOPA
     Dosage: MD: 7 ML CRD: 3.2 ML/H CRN: 0 ML/H ED: 1 ML 16 H THERAPY
     Route: 050
     Dates: start: 20181016, end: 20181017

REACTIONS (2)
  - Clavicle fracture [Not Recovered/Not Resolved]
  - Fall [Recovered/Resolved]

NARRATIVE: CASE EVENT DATE: 20190327
